FAERS Safety Report 6221607-5 (Version None)
Quarter: 2009Q2

REPORT INFORMATION
  Report Type: 
  Country: None (occurrence: None)
  Receive Date: 20090608
  Receipt Date: 20090602
  Transmission Date: 20091009
  Serious: Yes (Hospitalization)
  Sender: FDA-Public Use
  Company Number: FR-WYE-G03773409

PATIENT
  Age: 43 Year
  Sex: Male

DRUGS (10)
  1. EFFEXOR [Suspect]
     Dosage: ORAL
     Route: 048
  2. ACUPAN [Suspect]
     Dosage: ORAL
     Route: 048
  3. ARIXTRA [Suspect]
     Dosage: ORAL
     Route: 048
  4. IRBESARTAN + HYDROCHLOROTHIAZIDE [Suspect]
  5. GLYBURIDE [Suspect]
     Dosage: ORAL
     Route: 048
  6. ISOMERIDE (DEXFENFLURAMINE HYDROCHLORIDE, , 0) [Suspect]
     Dosage: ORAL
     Route: 048
     Dates: start: 19950101, end: 19950101
  7. LANTUS [Suspect]
     Dosage: SC
     Route: 058
  8. MEDIATOR (BENFLUOREX HYDROCHLORIDE, , 0) [Suspect]
     Dosage: ORAL
     Route: 048
     Dates: start: 20020101, end: 20030101
  9. ACETAMINOPHEN [Suspect]
     Dosage: ORAL
     Route: 048
  10. TAHOR (ATORVASTATIN, , 0) [Suspect]
     Dosage: ORAL
     Route: 048

REACTIONS (3)
  - DUODENAL ULCER PERFORATION [None]
  - GENERAL PHYSICAL HEALTH DETERIORATION [None]
  - PULMONARY ARTERIAL HYPERTENSION [None]
